FAERS Safety Report 7122560-2 (Version None)
Quarter: 2010Q4

REPORT INFORMATION
  Report Type: 
  Country: None (occurrence: None)
  Receive Date: 20101124
  Receipt Date: 20101115
  Transmission Date: 20110411
  Serious: Yes (Hospitalization, Other)
  Sender: FDA-Public Use
  Company Number: US-CELGENEUS-163-21880-10112140

PATIENT
  Sex: Female

DRUGS (2)
  1. REVLIMID [Suspect]
     Route: 048
     Dates: start: 20070701
  2. REVLIMID [Suspect]
     Route: 048
     Dates: start: 20080828

REACTIONS (6)
  - CARDIAC DISORDER [None]
  - FULL BLOOD COUNT DECREASED [None]
  - HYPERTENSION [None]
  - MYELODYSPLASTIC SYNDROME [None]
  - OEDEMA PERIPHERAL [None]
  - RENAL IMPAIRMENT [None]
